FAERS Safety Report 23663743 (Version 2)
Quarter: 2024Q2

REPORT INFORMATION
  Report Type: Spontaneous
  Country: US (occurrence: US)
  Receive Date: 20240322
  Receipt Date: 20240515
  Transmission Date: 20240716
  Serious: Yes (Death, Hospitalization, Other)
  Sender: FDA-Public Use
  Company Number: US-SA-SAC20240322000064

PATIENT
  Age: 3 Year
  Sex: Female
  Weight: 13.1 kg

DRUGS (14)
  1. DUPIXENT [Suspect]
     Active Substance: DUPILUMAB
     Indication: Dermatitis atopic
     Dosage: 200 MG, QM
     Route: 058
  2. VALACYCLOVIR HYDROCHLORIDE [Concomitant]
     Active Substance: VALACYCLOVIR HYDROCHLORIDE
  3. JAKAFI [Concomitant]
     Active Substance: RUXOLITINIB
  4. PREDNISOLONE [Concomitant]
     Active Substance: PREDNISOLONE
  5. POTASSIUM CHLORIDE [Concomitant]
     Active Substance: POTASSIUM CHLORIDE
  6. PENTAMIDINE ISETHIONATE [Concomitant]
     Active Substance: PENTAMIDINE ISETHIONATE
  7. ONDANSETRON HYDROCHLORIDE [Concomitant]
     Active Substance: ONDANSETRON HYDROCHLORIDE
     Dosage: 4 MG/5 ML
  8. MYCOPHENOLATE MOFETIL [Concomitant]
     Active Substance: MYCOPHENOLATE MOFETIL
  9. MELATONIN [Concomitant]
     Active Substance: MELATONIN
  10. LIDOCAINE [Concomitant]
     Active Substance: LIDOCAINE
  11. ITRACONAZOLE [Concomitant]
     Active Substance: ITRACONAZOLE
  12. FAMOTIDINE [Concomitant]
     Active Substance: FAMOTIDINE
  13. DIPHENHYDRAMINE HYDROCHLORIDE [Concomitant]
     Active Substance: DIPHENHYDRAMINE HYDROCHLORIDE
  14. EPINEPHRINE;SODIUM CHLORIDE [Concomitant]
     Dosage: UNK

REACTIONS (2)
  - Death [Fatal]
  - Bone marrow transplant rejection [Unknown]

NARRATIVE: CASE EVENT DATE: 20240101
